FAERS Safety Report 5366307-9 (Version None)
Quarter: 2007Q2

REPORT INFORMATION
  Report Type: 
  Country: None (occurrence: None)
  Receive Date: 20070620
  Receipt Date: 20070620
  Transmission Date: 20071010
  Serious: Yes (Hospitalization)
  Sender: FDA-Public Use
  Company Number: None

PATIENT
  Age: 74 Year
  Sex: Male

DRUGS (2)
  1. LISINOPRIL [Suspect]
     Indication: HYPERTENSION
     Dosage: 20MG BID PO
     Route: 048
     Dates: start: 19980317, end: 20070611
  2. SIROLIMUS [Suspect]
     Dosage: 8MG EVERY DAY PO
     Route: 048

REACTIONS (1)
  - ANGIOEDEMA [None]
